FAERS Safety Report 9037952 (Version 1)
Quarter: 2013Q1

REPORT INFORMATION
  Report Type: Spontaneous
  Country: US (occurrence: US)
  Receive Date: 20130129
  Receipt Date: 20130129
  Transmission Date: 20140127
  Serious: Yes (Other)
  Sender: FDA-Public Use
  Company Number: US-JNJFOC-20130114085

PATIENT
  Sex: 0

DRUGS (4)
  1. DARUNAVIR [Suspect]
     Indication: HIV INFECTION
     Route: 048
  2. ENFUVIRTIDE [Suspect]
     Indication: HIV INFECTION
     Route: 058
  3. RITONAVIR [Suspect]
     Indication: HIV INFECTION
     Route: 048
  4. ANTIRETROVIRALS (NOS) [Suspect]
     Indication: HIV INFECTION
     Route: 065

REACTIONS (1)
  - Erythema nodosum [Unknown]
